FAERS Safety Report 23304963 (Version 1)
Quarter: 2023Q4

REPORT INFORMATION
  Report Type: Spontaneous
  Country: AT (occurrence: AT)
  Receive Date: 20231218
  Receipt Date: 20231218
  Transmission Date: 20240110
  Serious: Yes (Death, Other)
  Sender: FDA-Public Use
  Company Number: AT-ELI_LILLY_AND_COMPANY-AT202312006638

PATIENT
  Age: 67 Year
  Sex: Female

DRUGS (4)
  1. RAMUCIRUMAB [Suspect]
     Active Substance: RAMUCIRUMAB
     Indication: Non-small cell lung cancer
     Dosage: 10 MG/KG, UNKNOWN
     Route: 065
     Dates: start: 20200306, end: 20201123
  2. RAMUCIRUMAB [Suspect]
     Active Substance: RAMUCIRUMAB
     Dosage: UNK UNK, UNKNOWN
     Route: 065
     Dates: start: 202211, end: 202301
  3. ERLOTINIB [Concomitant]
     Active Substance: ERLOTINIB
     Indication: Non-small cell lung cancer
     Dosage: 150 MG, DAILY
     Route: 065
     Dates: start: 20200306, end: 20201123
  4. ERLOTINIB [Concomitant]
     Active Substance: ERLOTINIB
     Dosage: UNK UNK, UNKNOWN
     Route: 065
     Dates: start: 202211, end: 202301

REACTIONS (2)
  - Death [Fatal]
  - Malignant neoplasm progression [Unknown]

NARRATIVE: CASE EVENT DATE: 20230201
